FAERS Safety Report 8598346-9 (Version None)
Quarter: 2012Q3

REPORT INFORMATION
  Report Type: 
  Country: None (occurrence: None)
  Receive Date: 20120816
  Receipt Date: 20120803
  Transmission Date: 20120928
  Serious: Yes (Hospitalization)
  Sender: FDA-Public Use
  Company Number: ZA-ELI_LILLY_AND_COMPANY-ZA201208004006

PATIENT
  Sex: Female

DRUGS (4)
  1. METFORMIN HYDROCHLORIDE [Concomitant]
     Indication: TYPE 2 DIABETES MELLITUS
     Dosage: 1000 MG, BID
     Route: 048
     Dates: start: 20111101
  2. HUMALOG MIX 75/25 [Suspect]
     Dosage: 24 U, EACH EVENING
     Dates: start: 20111101
  3. IRON [Concomitant]
     Indication: IRON DEFICIENCY
     Dosage: 1 DF, EACH MORNING
     Route: 048
     Dates: start: 20120625
  4. HUMALOG MIX 75/25 [Suspect]
     Indication: TYPE 2 DIABETES MELLITUS
     Dosage: 30 U, EACH MORNING
     Route: 058
     Dates: start: 20111101

REACTIONS (1)
  - TONSILLECTOMY [None]
